FAERS Safety Report 6746660-1 (Version None)
Quarter: 2010Q2

REPORT INFORMATION
  Report Type: 
  Country: None (occurrence: None)
  Receive Date: 20100528
  Receipt Date: 20091029
  Transmission Date: 20101027
  Serious: No
  Sender: FDA-Public Use
  Company Number: US-ASTRAZENECA-2009SE32045

PATIENT
  Sex: Female

DRUGS (7)
  1. PRILOSEC OTC [Suspect]
     Indication: GASTROOESOPHAGEAL REFLUX DISEASE
     Dosage: 1 TABLET, 1 /DAY FOR 4 DAYS
     Route: 048
     Dates: start: 20091024, end: 20091027
  2. PRILOSEC OTC [Suspect]
     Indication: CHEST PAIN
     Dosage: 1 TABLET, 1 /DAY FOR 4 DAYS
     Route: 048
     Dates: start: 20091024, end: 20091027
  3. PRILOSEC OTC [Suspect]
  4. PRILOSEC OTC [Suspect]
  5. LORAZEPAM [Concomitant]
     Dosage: UNKNOWN
  6. REMERON [Concomitant]
     Dosage: UNKNOWN
  7. OXYBUTYNIN [Concomitant]
     Dosage: UNKNOWN

REACTIONS (6)
  - ASTHENIA [None]
  - CHEST DISCOMFORT [None]
  - CHEST PAIN [None]
  - DIARRHOEA [None]
  - DRUG INEFFECTIVE [None]
  - INAPPROPRIATE SCHEDULE OF DRUG ADMINISTRATION [None]
